FAERS Safety Report 7424596-0 (Version None)
Quarter: 2011Q2

REPORT INFORMATION
  Report Type: 
  Country: None (occurrence: None)
  Receive Date: 20110419
  Receipt Date: 20110120
  Transmission Date: 20111010
  Serious: No
  Sender: FDA-Public Use
  Company Number: US-TEVA-259836USA

PATIENT
  Sex: Female
  Weight: 46.308 kg

DRUGS (2)
  1. LORAZEPAM [Concomitant]
     Indication: ANXIETY
     Route: 048
  2. PLAN B ONE-STEP [Suspect]
     Indication: POST COITAL CONTRACEPTION
     Dosage: 1.5 MILLIGRAM;
     Route: 048
     Dates: start: 20101207, end: 20101207

REACTIONS (5)
  - BREAST PAIN [None]
  - FLATULENCE [None]
  - BREAST TENDERNESS [None]
  - MENSTRUATION IRREGULAR [None]
  - PELVIC PAIN [None]
